FAERS Safety Report 5842858-5 (Version None)
Quarter: 2008Q3

REPORT INFORMATION
  Report Type: 
  Country: None (occurrence: None)
  Receive Date: 20080813
  Receipt Date: 20080805
  Transmission Date: 20090109
  Serious: Yes (Hospitalization)
  Sender: FDA-Public Use
  Company Number: US-JNJFOC-20080801520

PATIENT
  Sex: Female
  Weight: 73.48 kg

DRUGS (23)
  1. REMICADE [Suspect]
     Route: 042
  2. REMICADE [Suspect]
     Route: 042
  3. REMICADE [Suspect]
     Route: 042
  4. REMICADE [Suspect]
     Route: 042
  5. REMICADE [Suspect]
     Route: 042
  6. REMICADE [Suspect]
     Route: 042
  7. REMICADE [Suspect]
     Route: 042
  8. REMICADE [Suspect]
     Route: 042
  9. REMICADE [Suspect]
     Route: 042
  10. REMICADE [Suspect]
     Route: 042
  11. REMICADE [Suspect]
     Route: 042
  12. REMICADE [Suspect]
     Route: 042
  13. REMICADE [Suspect]
     Route: 042
  14. REMICADE [Suspect]
     Route: 042
  15. REMICADE [Suspect]
     Route: 042
  16. REMICADE [Suspect]
     Indication: CROHN'S DISEASE
     Route: 042
  17. SULFASALAZINE [Concomitant]
     Indication: CROHN'S DISEASE
  18. ANTISPASMOTICS [Concomitant]
     Indication: CROHN'S DISEASE
  19. BUDESONIDE [Concomitant]
     Indication: CROHN'S DISEASE
  20. PREDNISONE TAB [Concomitant]
     Indication: CROHN'S DISEASE
  21. FOLIC ACID [Concomitant]
     Indication: CROHN'S DISEASE
  22. VITAMINE B12 [Concomitant]
     Indication: CROHN'S DISEASE
  23. VITAMIN D [Concomitant]
     Indication: CROHN'S DISEASE

REACTIONS (1)
  - ILEITIS [None]
